FAERS Safety Report 20630602 (Version 1)
Quarter: 2022Q1

REPORT INFORMATION
  Report Type: Spontaneous
  Country: US (occurrence: US)
  Receive Date: 20220324
  Receipt Date: 20220324
  Transmission Date: 20220423
  Serious: Yes (Other)
  Sender: FDA-Public Use
  Company Number: US-EPICPHARMA-US-2022EPCSPO00188

PATIENT
  Age: 75 Year
  Sex: Female
  Weight: 44.91 kg

DRUGS (3)
  1. FUROSEMIDE [Suspect]
     Active Substance: FUROSEMIDE
     Indication: Cardiac failure
     Route: 048
     Dates: start: 2020
  2. FUROSEMIDE [Suspect]
     Active Substance: FUROSEMIDE
     Route: 048
     Dates: start: 202103
  3. ENTRESTO [Suspect]
     Active Substance: SACUBITRIL\VALSARTAN
     Indication: Cardiac failure
     Dosage: 24.26 MG
     Route: 048
     Dates: start: 20210313

REACTIONS (36)
  - Weight fluctuation [Unknown]
  - Fatigue [Recovered/Resolved]
  - Dyspnoea [Unknown]
  - Throat irritation [Unknown]
  - Rhinorrhoea [Unknown]
  - Oropharyngeal pain [Unknown]
  - Abdominal pain upper [Not Recovered/Not Resolved]
  - Muscle spasms [Recovered/Resolved]
  - Abdominal pain [Recovered/Resolved]
  - Anorectal discomfort [Recovering/Resolving]
  - Hypertension [Unknown]
  - Fall [Recovered/Resolved]
  - Ligament sprain [Recovered/Resolved]
  - Eye contusion [Recovered/Resolved]
  - Musculoskeletal stiffness [Unknown]
  - Movement disorder [Unknown]
  - Weight decreased [Unknown]
  - Sluggishness [Unknown]
  - Blood pressure increased [Unknown]
  - Stress [Unknown]
  - Memory impairment [Recovering/Resolving]
  - Pain in extremity [Unknown]
  - Erythema [Unknown]
  - Limb discomfort [Recovered/Resolved]
  - Limb injury [Recovered/Resolved]
  - Contusion [Recovered/Resolved]
  - Head injury [Recovered/Resolved]
  - Hypotension [Unknown]
  - Dizziness [Unknown]
  - Nausea [Recovered/Resolved]
  - Dry mouth [Unknown]
  - Flatulence [Recovered/Resolved]
  - Muscle spasms [Unknown]
  - Malaise [Recovered/Resolved]
  - Diarrhoea [Recovered/Resolved]
  - Cardiac flutter [Unknown]

NARRATIVE: CASE EVENT DATE: 20210313
